FAERS Safety Report 23891656 (Version 1)
Quarter: 2024Q2

REPORT INFORMATION
  Report Type: Report from Study
  Country: US (occurrence: US)
  Receive Date: 20240524
  Receipt Date: 20240524
  Transmission Date: 20240716
  Serious: No
  Sender: FDA-Public Use
  Company Number: US-ALXN-202405USA001138US

PATIENT
  Sex: Male

DRUGS (1)
  1. STRENSIQ [Suspect]
     Active Substance: ASFOTASE ALFA
     Indication: Product used for unknown indication
     Dosage: UNK
     Route: 065

REACTIONS (7)
  - Alanine aminotransferase decreased [Unknown]
  - Pain in extremity [Unknown]
  - Lipohypertrophy [Unknown]
  - Asthenia [Unknown]
  - Conjunctival deposit [Unknown]
  - Vitamin D decreased [Unknown]
  - Skin atrophy [Unknown]

NARRATIVE: CASE EVENT DATE: 20240422
